FAERS Safety Report 26096891 (Version 2)
Quarter: 2025Q4

REPORT INFORMATION
  Report Type: Spontaneous
  Country: US (occurrence: US)
  Receive Date: 20251127
  Receipt Date: 20251205
  Transmission Date: 20260118
  Serious: Yes (Life-Threatening, Other)
  Sender: TORRENT PHARMA INC.
  Company Number: US-TORRENT-00014616

PATIENT
  Age: 6 Decade
  Sex: Female

DRUGS (4)
  1. ESCITALOPRAM [Suspect]
     Active Substance: ESCITALOPRAM OXALATE
     Indication: Affective disorder
     Dosage: UNKNOWN
     Route: 065
  2. CODEINE\GUAIFENESIN [Suspect]
     Active Substance: CODEINE\GUAIFENESIN
     Indication: Cough
     Dosage: UNKNOWN
     Route: 065
  3. IFOSFAMIDE [Suspect]
     Active Substance: IFOSFAMIDE
     Indication: Metastases to lung
     Dosage: UNKNOWN
     Route: 065
  4. METHYLENE BLUE [Suspect]
     Active Substance: METHYLENE BLUE
     Indication: Encephalopathy
     Dosage: UNKNOWN
     Route: 065

REACTIONS (2)
  - Serotonin syndrome [Recovering/Resolving]
  - Drug clearance decreased [Unknown]
